FAERS Safety Report 11875774 (Version 1)
Quarter: 2015Q4

REPORT INFORMATION
  Report Type: Spontaneous
  Country: JP (occurrence: JP)
  Receive Date: 20151229
  Receipt Date: 20151229
  Transmission Date: 20160305
  Serious: Yes (Other)
  Sender: FDA-Public Use
  Company Number: JP-PFIZER INC-2015469434

PATIENT
  Age: 80 Year
  Weight: 54 kg

DRUGS (3)
  1. ZOSYN [Suspect]
     Active Substance: PIPERACILLIN SODIUM\TAZOBACTAM SODIUM
     Indication: PNEUMONIA ASPIRATION
     Dosage: UNK
     Route: 042
  2. VANCOMYCIN HYDROCHLORIDE. [Concomitant]
     Active Substance: VANCOMYCIN HYDROCHLORIDE
     Dosage: UNK
  3. PICIBANIL [Concomitant]
     Active Substance: OK-432
     Indication: PLEURODESIS
     Dosage: 0.5 KE, DAILY

REACTIONS (1)
  - Interstitial lung disease [Recovering/Resolving]
